FAERS Safety Report 9966639 (Version 2)
Quarter: 2014Q1

REPORT INFORMATION
  Report Type: Spontaneous
  Country: PR (occurrence: PR)
  Receive Date: 20140305
  Receipt Date: 20140305
  Transmission Date: 20141002
  Serious: No
  Sender: FDA-Public Use
  Company Number: PR-ABBVIE-13P-131-1063674-00

PATIENT
  Sex: Female
  Weight: 74.46 kg

DRUGS (12)
  1. HUMIRA [Suspect]
     Indication: RHEUMATOID ARTHRITIS
     Route: 058
     Dates: end: 20130207
  2. HUMIRA [Suspect]
     Indication: PSORIATIC ARTHROPATHY
     Route: 058
     Dates: start: 201303
  3. ATENOLOL [Concomitant]
     Indication: HYPERTENSION
     Route: 048
  4. SYNTHROID [Concomitant]
     Indication: HYPOTHYROIDISM
     Route: 048
  5. FOLIC ACID [Concomitant]
     Indication: RHEUMATOID ARTHRITIS
     Route: 048
  6. METHOTREXATE [Concomitant]
     Indication: RHEUMATOID ARTHRITIS
     Dosage: EVERY MONDAY
     Route: 048
  7. GABAPENTIN [Concomitant]
     Indication: PAIN
  8. TRAMADOL [Concomitant]
     Indication: PAIN
     Route: 048
  9. CITALOPRAM HBR [Concomitant]
     Indication: ANXIETY
     Route: 048
  10. TEMAZEPAM [Concomitant]
     Indication: ANXIETY
     Route: 048
  11. MIRTAZAPINE [Concomitant]
     Indication: PRODUCT USED FOR UNKNOWN INDICATION
     Dosage: 0.5 AT NIGHTTIME
     Route: 048
  12. EVOXAC [Concomitant]
     Indication: SJOGREN^S SYNDROME

REACTIONS (1)
  - Nasopharyngitis [Recovered/Resolved]
